FAERS Safety Report 5469276-6 (Version None)
Quarter: 2007Q3

REPORT INFORMATION
  Report Type: 
  Country: None (occurrence: None)
  Receive Date: 20070927
  Receipt Date: 20070918
  Transmission Date: 20080115
  Serious: Yes (Other)
  Sender: FDA-Public Use
  Company Number: PHBS2007BR15529

PATIENT
  Sex: Male

DRUGS (1)
  1. RECLAST [Suspect]
     Dosage: 5MG/100ML

REACTIONS (2)
  - BLOOD PARATHYROID HORMONE INCREASED [None]
  - CALCIUM IONISED DECREASED [None]
